FAERS Safety Report 17182545 (Version 1)
Quarter: 2019Q4

REPORT INFORMATION
  Report Type: Spontaneous
  Country: SE (occurrence: SE)
  Receive Date: 20191220
  Receipt Date: 20191220
  Transmission Date: 20200122
  Serious: Yes (Hospitalization)
  Sender: FDA-Public Use
  Company Number: SE-TEVA-2019-SE-1154056

PATIENT
  Sex: Female

DRUGS (2)
  1. OXASCAND [Suspect]
     Active Substance: OXAZEPAM
     Dosage: ^10 MAYBE OXASCAND 10 MG^
     Route: 065
     Dates: start: 201811, end: 201811
  2. PROPAVAN [Suspect]
     Active Substance: PROPIOMAZINE
     Dosage: ^MAYBE AROUND 30^
     Route: 048
     Dates: start: 201811, end: 201811

REACTIONS (3)
  - Fatigue [Unknown]
  - Intentional self-injury [Unknown]
  - Intentional overdose [Unknown]

NARRATIVE: CASE EVENT DATE: 201811
